FAERS Safety Report 5513047-9 (Version None)
Quarter: 2007Q4

REPORT INFORMATION
  Report Type: 
  Country: None (occurrence: None)
  Receive Date: 20071108
  Receipt Date: 20071026
  Transmission Date: 20080405
  Serious: Yes (Life-Threatening, Hospitalization)
  Sender: FDA-Public Use
  Company Number: 2007334019

PATIENT
  Age: 76 Year
  Sex: Female
  Weight: 58 kg

DRUGS (8)
  1. DRAMAMINE [Suspect]
     Indication: VERTIGO
     Dosage: 50 MG QD (50 MG, 1 IN 1 D), ORAL
     Route: 048
     Dates: start: 20010319
  2. LIPITOR [Suspect]
     Indication: HYPERLIPIDAEMIA
     Dosage: 10 MG QD (10 MG, 1 IN 1 D), ORAL
     Route: 048
     Dates: start: 20010904, end: 20070705
  3. ALDACTONE [Suspect]
     Indication: HYPERTENSION
     Dosage: 25 MG QD (25 MG, 1 IN 1 D), ORAL
     Route: 048
     Dates: start: 20061205, end: 20070705
  4. PANALDINE (TICLOPIDINE HYDROCHLORIDE) [Suspect]
     Indication: MYOCARDIAL INFARCTION
     Dosage: 100 MG QD (100 MG, 1 IN 1 D), ORAL
     Route: 048
  5. SERENACE (HALOPERIDOL) [Suspect]
     Indication: DELUSION
     Dosage: .75 MG QD (0.75 MG, 1 IN 1 D), ORAL
     Route: 048
     Dates: start: 20030827
  6. GRAMALIL (TIAPRIDE HYDROCHLORIDE) [Suspect]
     Indication: DELUSION
     Dosage: 25 MG TID (25 MG, 3 IN 1 D), ORAL
     Route: 048
     Dates: start: 20010904
  7. ASPIRIN [Concomitant]
  8. GASLON (IRSOGLADINE) [Concomitant]

REACTIONS (2)
  - MALAISE [None]
  - MUSCULAR WEAKNESS [None]
